FAERS Safety Report 8708597 (Version 2)
Quarter: 2012Q4

REPORT INFORMATION
  Report Type: 
  Country: US (occurrence: US)
  Receive Date: 20120806
  Receipt Date: 20120917
  Transmission Date: 20130627
  Serious: Yes (Other)
  Sender: FDA-Public Use
  Company Number: US-US-EMD SERONO, INC.-7150627

PATIENT
  Age: 28 Year
  Sex: Male
  Weight: 68 kg

DRUGS (2)
  1. REBIF [Suspect]
     Indication: MULTIPLE SCLEROSIS
     Route: 058
     Dates: start: 200705
  2. ADVIL [Concomitant]
     Indication: PREMEDICATION

REACTIONS (3)
  - Complex partial seizures [Recovering/Resolving]
  - Blood magnesium decreased [Unknown]
  - Depression [Not Recovered/Not Resolved]
